FAERS Safety Report 6517239-1 (Version None)
Quarter: 2009Q4

REPORT INFORMATION
  Report Type: 
  Country: None (occurrence: None)
  Receive Date: 20091217
  Receipt Date: 20090827
  Transmission Date: 20100525
  Serious: Yes (Other)
  Sender: FDA-Public Use
  Company Number: 86323

PATIENT
  Age: 47 Year
  Sex: Female

DRUGS (1)
  1. CISPLATIN [Suspect]
     Indication: ANAL CANCER
     Dates: start: 20071201

REACTIONS (1)
  - NEUROPATHY PERIPHERAL [None]
